FAERS Safety Report 7049303-5 (Version None)
Quarter: 2010Q4

REPORT INFORMATION
  Report Type: 
  Country: None (occurrence: None)
  Receive Date: 20101018
  Receipt Date: 20101011
  Transmission Date: 20110411
  Serious: Yes (Hospitalization)
  Sender: FDA-Public Use
  Company Number: HU-ROCHE-728911

PATIENT
  Sex: Male
  Weight: 70 kg

DRUGS (2)
  1. PEGINTERFERON ALFA-2A [Suspect]
     Dosage: PERMANENTLY DISCONTINUED.
     Route: 058
     Dates: start: 20090403, end: 20090619
  2. RIBAVIRIN [Suspect]
     Dosage: DATE OF LAST DOSE PRIOR TO SAE:19 JUNE 2010.
     Route: 065
     Dates: start: 20090403

REACTIONS (1)
  - INTESTINAL PERFORATION [None]
